FAERS Safety Report 15530008 (Version 1)
Quarter: 2018Q4

REPORT INFORMATION
  Report Type: Spontaneous
  Country: FI (occurrence: FI)
  Receive Date: 20181018
  Receipt Date: 20181018
  Transmission Date: 20190205
  Serious: Yes (Disabling)
  Sender: FDA-Public Use
  Company Number: FI-MERZ NORTH AMERICA, INC.-18MRZ-00550

PATIENT
  Age: 59 Year
  Sex: Female

DRUGS (2)
  1. XEOMIN [Suspect]
     Active Substance: INCOBOTULINUMTOXINA
     Indication: TORTICOLLIS
     Dosage: UNKNOWN
     Route: 030
     Dates: start: 20170926, end: 20170926
  2. RIVATRIL [Concomitant]
     Active Substance: CLONAZEPAM
     Indication: PRODUCT USED FOR UNKNOWN INDICATION

REACTIONS (1)
  - Muscle atrophy [Recovered/Resolved]

NARRATIVE: CASE EVENT DATE: 20170926
